FAERS Safety Report 5227493-4 (Version None)
Quarter: 2007Q1

REPORT INFORMATION
  Report Type: 
  Country: None (occurrence: None)
  Receive Date: 20061201
  Receipt Date: 20061012
  Transmission Date: 20070707
  Serious: No
  Sender: FDA-Public Use
  Company Number: US200610002329

PATIENT
  Age: 61 Year
  Sex: Female

DRUGS (4)
  1. CYMBALTA [Suspect]
     Indication: DEPRESSION
     Dosage: 30 MG, ORAL
     Route: 048
     Dates: start: 20061010
  2. PERCOCET [Concomitant]
  3. RESTORIL [Concomitant]
  4. HISTUSSIN D (HYDROCODONE BITARTRATE, PSEUDOEPHEDRINE HYDROCHLORIDE) [Concomitant]

REACTIONS (6)
  - DECREASED APPETITE [None]
  - FALL [None]
  - FEELING ABNORMAL [None]
  - HYPERHIDROSIS [None]
  - HYPERSOMNIA [None]
  - NIGHT SWEATS [None]
